FAERS Safety Report 8382102-0 (Version None)
Quarter: 2012Q2

REPORT INFORMATION
  Report Type: 
  Country: None (occurrence: None)
  Receive Date: 20120524
  Receipt Date: 20120509
  Transmission Date: 20120825
  Serious: Yes (Other)
  Sender: FDA-Public Use
  Company Number: FR-JNJFOC-20120407576

PATIENT
  Sex: Male
  Weight: 91 kg

DRUGS (1)
  1. TOPIRAMATE [Suspect]
     Indication: EPILEPSY
     Dosage: THE START DATE WAS MORE THAN 15 YEARS
     Route: 048
     Dates: end: 20110104

REACTIONS (2)
  - DYSPNOEA [None]
  - CARDIAC DISORDER [None]
